FAERS Safety Report 8245426 (Version 3)
Quarter: 2014Q4

REPORT INFORMATION
  Report Type: Report from Study
  Country: CA (occurrence: CA)
  Receive Date: 20111115
  Receipt Date: 20141008
  Transmission Date: 20150529
  Serious: No
  Sender: FDA-Public Use
  Company Number: PHHY2011CA098588

PATIENT
  Sex: Female

DRUGS (3)
  1. EXJADE [Suspect]
     Active Substance: DEFERASIROX
     Indication: THALASSAEMIA
     Dosage: 500 MG, UNK
     Route: 048
     Dates: start: 2011
  2. MULTIVITAMIN [Concomitant]
     Active Substance: VITAMINS
     Indication: PRODUCT USED FOR UNKNOWN INDICATION
     Dosage: UNK UKN, UNK
     Route: 065
  3. EXJADE [Suspect]
     Active Substance: DEFERASIROX
     Dosage: 625 MG, QD
     Route: 048
     Dates: start: 20111201

REACTIONS (6)
  - Weight increased [Unknown]
  - Dental caries [Unknown]
  - Ear infection [Recovering/Resolving]
  - Hearing impaired [Unknown]
  - Nasopharyngitis [Unknown]
  - Serum ferritin increased [Unknown]
